FAERS Safety Report 7041756-1 (Version None)
Quarter: 2010Q4

REPORT INFORMATION
  Report Type: 
  Country: None (occurrence: None)
  Receive Date: 20101013
  Receipt Date: 20100810
  Transmission Date: 20110411
  Serious: No
  Sender: FDA-Public Use
  Company Number: US-ASTRAZENECA-2010SE37513

PATIENT
  Age: 71 Year
  Sex: Male
  Weight: 88.5 kg

DRUGS (6)
  1. SYMBICORT [Suspect]
     Indication: CHRONIC OBSTRUCTIVE PULMONARY DISEASE
     Dosage: TOTAL DAILY DOSE 640 MCG, BID
     Route: 055
  2. LASIX [Concomitant]
  3. LIPITOR [Concomitant]
  4. DUONEB [Concomitant]
  5. COMBIVENT [Concomitant]
  6. ALBUTEROL SULFATE [Concomitant]

REACTIONS (2)
  - HYPOAESTHESIA [None]
  - OEDEMA PERIPHERAL [None]
